FAERS Safety Report 7332623-4 (Version None)
Quarter: 2011Q1

REPORT INFORMATION
  Report Type: 
  Country: None (occurrence: None)
  Receive Date: 20110228
  Receipt Date: 20110228
  Transmission Date: 20110831
  Serious: Yes (Disabling)
  Sender: FDA-Public Use
  Company Number: None

PATIENT
  Age: 70 Year
  Sex: Female
  Weight: 90.2658 kg

DRUGS (2)
  1. AZITHROMYCIN [Suspect]
     Indication: PNEUMONIA
     Dosage: 6 2 FIRST DAY
     Dates: start: 20101020, end: 20101030
  2. AZITHROMYCIN [Suspect]
     Indication: COLLAPSE OF LUNG
     Dosage: 6 2 FIRST DAY
     Dates: start: 20101020, end: 20101030

REACTIONS (4)
  - HYPERSENSITIVITY [None]
  - ACNE [None]
  - SCRATCH [None]
  - PRURITUS [None]
